FAERS Safety Report 10328738 (Version 2)
Quarter: 2014Q3

REPORT INFORMATION
  Report Type: Spontaneous
  Country: US (occurrence: US)
  Receive Date: 20140721
  Receipt Date: 20140904
  Transmission Date: 20150326
  Serious: Yes (Hospitalization)
  Sender: FDA-Public Use
  Company Number: US-BAYER-2014-108595

PATIENT
  Age: 29 Year
  Sex: Female
  Weight: 88.89 kg

DRUGS (4)
  1. YASMIN [Suspect]
     Active Substance: DROSPIRENONE\ETHINYL ESTRADIOL
     Dosage: UNK
     Dates: start: 200505, end: 200610
  2. ALBUTEROL. [Concomitant]
     Active Substance: ALBUTEROL
  3. YAZ [Suspect]
     Active Substance: DROSPIRENONE\ETHINYL ESTRADIOL
  4. SINGULAIR [Concomitant]
     Active Substance: MONTELUKAST SODIUM

REACTIONS (8)
  - Pain [Recovered/Resolved]
  - Anxiety [None]
  - Pulmonary embolism [Recovered/Resolved]
  - Injury [Recovered/Resolved]
  - General physical health deterioration [Recovered/Resolved]
  - Cholelithiasis [None]
  - Pain [None]
  - Emotional distress [None]

NARRATIVE: CASE EVENT DATE: 20061004
